FAERS Safety Report 9122190 (Version 1)
Quarter: 2013Q1

REPORT INFORMATION
  Report Type: Spontaneous
  Country: BR (occurrence: BR)
  Receive Date: 20130227
  Receipt Date: 20130227
  Transmission Date: 20140127
  Serious: Yes (Other)
  Sender: FDA-Public Use
  Company Number: BR-JNJFOC-20130211811

PATIENT
  Age: 16 None
  Sex: Male

DRUGS (3)
  1. REMICADE [Suspect]
     Indication: CROHN^S DISEASE
     Route: 042
  2. REMICADE [Suspect]
     Indication: CROHN^S DISEASE
     Dosage: FIRST MAINTAINANCE DOSE
     Route: 042
     Dates: start: 20130104
  3. AZATHIOPRINE [Concomitant]
     Indication: CROHN^S DISEASE
     Route: 065

REACTIONS (2)
  - Prurigo [Not Recovered/Not Resolved]
  - Pruritus [Recovered/Resolved]
